FAERS Safety Report 10204852 (Version 1)
Quarter: 2014Q2

REPORT INFORMATION
  Report Type: Spontaneous
  Country: US (occurrence: US)
  Receive Date: 20140529
  Receipt Date: 20140529
  Transmission Date: 20141212
  Serious: No
  Sender: FDA-Public Use
  Company Number: US-GILEAD-2014-0103816

PATIENT
  Sex: Female

DRUGS (2)
  1. LETAIRIS [Suspect]
     Indication: PRODUCT USED FOR UNKNOWN INDICATION
     Dosage: 5 MG, QD
     Route: 065
     Dates: start: 20130608
  2. REMODULIN [Concomitant]

REACTIONS (4)
  - Dyspepsia [Unknown]
  - Face oedema [Unknown]
  - Weight fluctuation [Unknown]
  - Application site vesicles [Unknown]
